FAERS Safety Report 7604917-6 (Version None)
Quarter: 2011Q3

REPORT INFORMATION
  Report Type: 
  Country: None (occurrence: None)
  Receive Date: 20110712
  Receipt Date: 20110629
  Transmission Date: 20111222
  Serious: Yes (Hospitalization)
  Sender: FDA-Public Use
  Company Number: US-MYLANLABS-2011S1013821

PATIENT
  Age: 16 Year
  Sex: Female

DRUGS (2)
  1. INDOMETHACIN SODIUM [Suspect]
     Dosage: 100MG 3 TIMES DAILY
     Route: 065
  2. INDOMETHACIN SODIUM [Suspect]
     Indication: HEADACHE
     Dosage: 75MG 3 TIMES DAILY
     Route: 065

REACTIONS (1)
  - MYOCLONUS [None]
